FAERS Safety Report 7437973-9 (Version None)
Quarter: 2011Q2

REPORT INFORMATION
  Report Type: 
  Country: None (occurrence: None)
  Receive Date: 20110426
  Receipt Date: 20110413
  Transmission Date: 20111010
  Serious: Yes (Other)
  Sender: FDA-Public Use
  Company Number: US-JNJFOC-2011001334

PATIENT
  Age: 72 Year
  Sex: Male
  Weight: 113.4 kg

DRUGS (8)
  1. LIPITOR [Concomitant]
     Indication: BLOOD CHOLESTEROL INCREASED
     Route: 048
  2. HUMULIN N [Concomitant]
     Indication: DIABETES MELLITUS
     Dosage: TEN UNITS, 6-12 MONTHS
     Route: 065
  3. EXTRA STRENGTH ROLAIDS SOFTCHEWS WILD CHERRY [Suspect]
     Indication: DYSPEPSIA
     Dosage: ^EASILY EIGHT TO TWELVE PER DAY FOR 30 YEARS AS NECESSARY^
     Route: 048
  4. EXTRA STRENGTH ROLAIDS SOFTCHEWS WILD CHERRY [Suspect]
     Indication: HYPERCHLORHYDRIA
     Dosage: ^EASILY EIGHT TO TWELVE PER DAY FOR 30 YEARS AS NECESSARY^
     Route: 048
  5. PLAVIX [Concomitant]
     Route: 048
  6. COZAAR [Concomitant]
     Route: 048
  7. HYDROCHLOROTHIAZIDE [Concomitant]
     Route: 048
  8. NEXIUM [Concomitant]
     Indication: GASTROOESOPHAGEAL REFLUX DISEASE
     Route: 048

REACTIONS (13)
  - PAIN [None]
  - BALANCE DISORDER [None]
  - MALAISE [None]
  - PRODUCT QUALITY ISSUE [None]
  - ABASIA [None]
  - TREMOR [None]
  - OVERDOSE [None]
  - BLOOD CALCIUM INCREASED [None]
  - FALL [None]
  - COUGH [None]
  - INCORRECT DRUG ADMINISTRATION DURATION [None]
  - RENAL FAILURE [None]
  - BLOOD CREATININE INCREASED [None]
